FAERS Safety Report 8508337-1 (Version None)
Quarter: 2012Q3

REPORT INFORMATION
  Report Type: 
  Country: None (occurrence: None)
  Receive Date: 20120713
  Receipt Date: 20120704
  Transmission Date: 20120928
  Serious: Yes (Other)
  Sender: FDA-Public Use
  Company Number: CA-JNJFOC-20120702540

PATIENT
  Sex: Female
  Weight: 105 kg

DRUGS (3)
  1. SEASONALE [Concomitant]
     Dosage: STARTED APPROXIMATELY A YEAR AGO.  DOSE TAKEN DAILY FOR 12 WEEKS AND THEN 1 WEEK OFF.
     Route: 048
  2. REMICADE [Suspect]
     Indication: COLITIS ULCERATIVE
     Route: 042
     Dates: start: 20091123
  3. BENADRYL [Concomitant]
     Indication: PREMEDICATION
     Route: 042

REACTIONS (1)
  - ANAL ABSCESS [None]
